FAERS Safety Report 4417324-4 (Version None)
Quarter: 2004Q3

REPORT INFORMATION
  Report Type: 
  Country: None (occurrence: None)
  Receive Date: 20040806
  Receipt Date: 20040804
  Transmission Date: 20050211
  Serious: Yes (Hospitalization)
  Sender: FDA-Public Use
  Company Number: US-GLAXOSMITHKLINE-A0520975A

PATIENT
  Age: 44 Year
  Sex: Female

DRUGS (3)
  1. ESKALITH [Suspect]
     Route: 048
     Dates: start: 20040501
  2. LITHIUM [Suspect]
     Indication: BIPOLAR DISORDER
  3. SEROQUEL [Concomitant]

REACTIONS (3)
  - BIPOLAR I DISORDER [None]
  - MANIA [None]
  - PSYCHOTIC DISORDER [None]
